FAERS Safety Report 4612942-2 (Version None)
Quarter: 2005Q1

REPORT INFORMATION
  Report Type: 
  Country: None (occurrence: None)
  Receive Date: 20050318
  Receipt Date: 20050308
  Transmission Date: 20050727
  Serious: Yes (Hospitalization)
  Sender: FDA-Public Use
  Company Number: FR-ROCHE-397928

PATIENT
  Age: 21 Year

DRUGS (2)
  1. CELLCEPT [Suspect]
     Route: 065
  2. RAPAMYCIN [Concomitant]

REACTIONS (1)
  - AGRANULOCYTOSIS [None]
